FAERS Safety Report 9358500 (Version 2)
Quarter: 2020Q3

REPORT INFORMATION
  Report Type: Spontaneous
  Country: CH (occurrence: CH)
  Receive Date: 20130620
  Receipt Date: 20140901
  Transmission Date: 20201104
  Serious: Yes (Other)
  Sender: FDA-Public Use
  Company Number: CH-009507513-1306CHE006416

PATIENT
  Age: 30 Year
  Sex: Female

DRUGS (11)
  1. KETALAR [Suspect]
     Active Substance: KETAMINE HYDROCHLORIDE
     Dosage: 20 MG, 1 PER 1 TOTAL
     Route: 064
     Dates: start: 20130408, end: 20130408
  2. IBUPROFEN. [Suspect]
     Active Substance: IBUPROFEN
     Dosage: UNK
     Route: 064
     Dates: start: 20130408, end: 20130413
  3. TRAMADOL HYDROCHLORIDE. [Suspect]
     Active Substance: TRAMADOL HYDROCHLORIDE
     Dosage: UNK
     Route: 064
     Dates: start: 20130408, end: 20130413
  4. EPHEDRINE. [Suspect]
     Active Substance: EPHEDRINE
     Indication: ANAESTHESIA
     Dosage: 10 MG, 1 PER 1 TOTAL
     Route: 064
     Dates: start: 20130408, end: 20130408
  5. ESMERON [Suspect]
     Active Substance: ROCURONIUM BROMIDE
     Dosage: 40 MG, 1 PER 1 TOTAL
     Route: 064
     Dates: start: 20130408, end: 20130408
  6. SUFENTA [Suspect]
     Active Substance: SUFENTANIL CITRATE
     Indication: ANAESTHESIA
     Dosage: 89.6 MICROGRAM, 1 PER 1 TOTAL
     Route: 064
     Dates: start: 20130408, end: 20130408
  7. LIDOCAINE. [Suspect]
     Active Substance: LIDOCAINE
     Dosage: 40 MG, 1 PER 1 TOTAL
     Route: 064
     Dates: start: 20130408, end: 20130408
  8. PREDNISONE. [Suspect]
     Active Substance: PREDNISONE
     Dosage: 50 MG, 1 PER 1 TOTAL
     Route: 064
     Dates: start: 20130408, end: 20130413
  9. CATAPRESAN [Suspect]
     Active Substance: CLONIDINE
     Dosage: 30 MICROGRAM, 1 PER 1 TOTAL
     Route: 064
     Dates: start: 20130408, end: 20130408
  10. PROPOFOL. [Suspect]
     Active Substance: PROPOFOL
     Dosage: 180 MG, 1 PER 1 TOTAL
     Route: 064
     Dates: start: 20130408, end: 20130408
  11. CEFUROXIME. [Suspect]
     Active Substance: CEFUROXIME
     Dosage: 250 MG, 1 PER 1 TOTAL
     Route: 064
     Dates: start: 20130408, end: 20130418

REACTIONS (1)
  - Exposure during pregnancy [Recovered/Resolved]

NARRATIVE: CASE EVENT DATE: 20130408
